FAERS Safety Report 13999832 (Version 2)
Quarter: 2019Q1

REPORT INFORMATION
  Report Type: Spontaneous
  Country: AU (occurrence: AU)
  Receive Date: 20170922
  Receipt Date: 20190108
  Transmission Date: 20190417
  Serious: Yes (Hospitalization, Other)
  Sender: FDA-Public Use
  Company Number: AU-TEVA-807497ISR

PATIENT
  Sex: Male

DRUGS (5)
  1. QUETIAPINE/MANUFACTURER UNKNOWN) [Suspect]
     Active Substance: QUETIAPINE
     Route: 065
  2. OLANZAPINE (BRAND UNSPECIFIED) [Suspect]
     Active Substance: OLANZAPINE
     Dosage: 30 MG AT BED TIME
  3. DESVENLAFAXINE/ MANUFACTURER UNKNOWN [Suspect]
     Active Substance: DESVENLAFAXINE
     Dosage: 150 MG MANE
  4. CLOZAPINE. [Suspect]
     Active Substance: CLOZAPINE
     Route: 065
     Dates: start: 2014
  5. LORAZEPAM (BRAND UNKNOWN) [Concomitant]
     Dosage: PRN (WHEN REQUIRED)

REACTIONS (15)
  - C-reactive protein increased [Unknown]
  - Left ventricular dysfunction [Unknown]
  - Troponin increased [Unknown]
  - Myocarditis [Unknown]
  - Back pain [Unknown]
  - Hallucination, auditory [Unknown]
  - Hyperhidrosis [Unknown]
  - Delusion [Unknown]
  - Somatic delusion [Not Recovered/Not Resolved]
  - Mental disorder [Unknown]
  - C-reactive protein decreased [Unknown]
  - Sweating fever [Unknown]
  - Anxiety [Unknown]
  - Physical disability [Unknown]
  - Loss of personal independence in daily activities [Unknown]
